FAERS Safety Report 7428650 (Version 7)
Quarter: 2014Q2

REPORT INFORMATION
  Report Type: Spontaneous
  Country: US (occurrence: US)
  Receive Date: 20100623
  Receipt Date: 20140529
  Transmission Date: 20141212
  Serious: Yes (Hospitalization)
  Sender: FDA-Public Use
  Company Number: US-BAYER-201025479NA

PATIENT
  Age: 24 Year
  Sex: Female
  Weight: 54.42 kg

DRUGS (10)
  1. YASMIN [Suspect]
     Indication: CONTRACEPTION
     Dates: start: 200312
  2. YASMIN [Suspect]
     Indication: CONTRACEPTION
     Dosage: UNK
     Dates: start: 20040922, end: 200503
  3. YAZ [Suspect]
  4. IBUPROFEN [Concomitant]
     Dosage: UNK
     Dates: start: 2002, end: 2008
  5. DILANTIN [Concomitant]
     Indication: CONVULSION
     Dosage: UNK
     Dates: start: 2005
  6. MARIJUANA [Concomitant]
     Dosage: UNK
     Dates: end: 20050317
  7. H-C TUSSIVE [Concomitant]
     Indication: COUGH
     Dosage: ONE OR TWO TEASPOONS 6 HOURS AS NEEDED FOR
     Route: 048
     Dates: start: 20041202
  8. H-C TUSSIVE [Concomitant]
     Indication: NASAL CONGESTION
  9. ANTIPYRINE W/BENZOCAINE [Concomitant]
     Dosage: 2 DROPS INTO PAINFUL EAR Q 2 H PRN
     Route: 061
     Dates: start: 20041202
  10. AMOXICILLIN [Concomitant]
     Indication: INFECTION
     Dosage: 875 MG, ONE TABLET TID
     Route: 048
     Dates: start: 20041202

REACTIONS (9)
  - Cerebrovascular accident [None]
  - Dysarthria [None]
  - Mobility decreased [None]
  - Facial paresis [None]
  - Hypoaesthesia [None]
  - Hemiparesis [None]
  - Mental status changes [None]
  - Depression [None]
  - Anxiety [None]
